FAERS Safety Report 14471591 (Version 1)
Quarter: 2018Q1

REPORT INFORMATION
  Report Type: Spontaneous
  Country: CA (occurrence: CA)
  Receive Date: 20180131
  Receipt Date: 20180131
  Transmission Date: 20180509
  Serious: Yes (Other)
  Sender: FDA-Public Use
  Company Number: CA-PFIZER INC-2018036034

PATIENT
  Age: 65 Year
  Sex: Female
  Weight: 100 kg

DRUGS (1)
  1. CELEBREX [Suspect]
     Active Substance: CELECOXIB
     Dosage: UNK, AS NEEDED

REACTIONS (6)
  - Device related infection [Unknown]
  - Fall [Unknown]
  - Sensitivity to weather change [Unknown]
  - Limb deformity [Unknown]
  - Nodule [Unknown]
  - Fine motor skill dysfunction [Unknown]
